FAERS Safety Report 11691473 (Version 2)
Quarter: 2016Q3

REPORT INFORMATION
  Report Type: Spontaneous
  Country: DK (occurrence: DK)
  Receive Date: 20151102
  Receipt Date: 20160920
  Transmission Date: 20161109
  Serious: Yes (Hospitalization)
  Sender: FDA-Public Use
  Company Number: PHHY2015DK138525

PATIENT
  Age: 50 Year
  Sex: Male

DRUGS (4)
  1. METOPROLOL TARTRATE. [Concomitant]
     Active Substance: METOPROLOL TARTRATE
     Indication: PRODUCT USED FOR UNKNOWN INDICATION
     Route: 065
  2. MAGNYL                             /00228701/ [Concomitant]
     Indication: PRODUCT USED FOR UNKNOWN INDICATION
     Route: 065
  3. PLAVIX [Concomitant]
     Active Substance: CLOPIDOGREL BISULFATE
     Indication: PRODUCT USED FOR UNKNOWN INDICATION
     Route: 065
  4. SIMVASTATIN SANDOZ [Suspect]
     Active Substance: SIMVASTATIN
     Indication: HYPERCHOLESTEROLAEMIA
     Dosage: 40 MG, STYRKE
     Route: 048
     Dates: start: 201001, end: 201312

REACTIONS (26)
  - Palpitations [Recovered/Resolved]
  - Staphylococcal infection [Recovered/Resolved]
  - Gallbladder enlargement [Recovered/Resolved]
  - Gynaecomastia [Recovered/Resolved]
  - Night sweats [Not Recovered/Not Resolved]
  - Cholecystectomy [Recovered/Resolved]
  - Arthralgia [Recovered/Resolved]
  - Anxiety [Recovered/Resolved]
  - Joint range of motion decreased [Recovered/Resolved]
  - Weight decreased [Not Recovered/Not Resolved]
  - Blister [Recovered/Resolved]
  - Depressed mood [Not Recovered/Not Resolved]
  - Vomiting [Recovering/Resolving]
  - Hypoacusis [Recovering/Resolving]
  - Depression [Not Recovered/Not Resolved]
  - Myalgia [Recovered/Resolved]
  - Cholelithiasis [Recovered/Resolved]
  - Gallbladder polyp [Recovered/Resolved]
  - Abdominal pain [Recovered/Resolved]
  - Dizziness [Not Recovered/Not Resolved]
  - Heart rate decreased [Unknown]
  - Decreased appetite [Not Recovered/Not Resolved]
  - Nausea [Not Recovered/Not Resolved]
  - Loss of libido [Not Recovered/Not Resolved]
  - Memory impairment [Not Recovered/Not Resolved]
  - Pancreatitis [Not Recovered/Not Resolved]

NARRATIVE: CASE EVENT DATE: 201201
